FAERS Safety Report 10298290 (Version 1)
Quarter: 2014Q3

REPORT INFORMATION
  Report Type: Spontaneous
  Country: BR (occurrence: BR)
  Receive Date: 20140711
  Receipt Date: 20140711
  Transmission Date: 20150326
  Serious: Yes (Hospitalization, Other)
  Sender: FDA-Public Use
  Company Number: BR-PFIZER INC-2014189469

PATIENT
  Age: 96 Year
  Sex: Female
  Weight: 60 kg

DRUGS (8)
  1. ASPIRINA PREVENT [Concomitant]
     Active Substance: ASPIRIN
     Dosage: 1 DF, DAILY
     Dates: start: 201312
  2. DEOCIL [Concomitant]
     Indication: ANTIINFLAMMATORY THERAPY
     Dosage: 1 DF, AS NEEDED
     Route: 060
     Dates: start: 201403
  3. LOSARTAN [Concomitant]
     Active Substance: LOSARTAN
     Dosage: 25 MG (1 TABLET IN THE MORNING), 1X/DAY
     Dates: start: 201312
  4. XALATAN [Suspect]
     Active Substance: LATANOPROST
     Indication: CATARACT
     Dosage: 1 GTT IN EACH EYE (3UG), 1X/DAY (AT NIGHT)
     Route: 047
  5. DEOCIL [Concomitant]
     Indication: ANALGESIC THERAPY
  6. ALGINAC 1000 [Concomitant]
     Indication: PAIN
     Dosage: 1 TABLET, EVERY 8 HOURS, AS NEEDED
     Dates: start: 201403
  7. ATORVASTATIN [Concomitant]
     Active Substance: ATORVASTATIN
     Dosage: 10 MG (1 TABLET), DAILY
     Dates: start: 201312, end: 201406
  8. PARACETAMOL [Concomitant]
     Active Substance: ACETAMINOPHEN
     Indication: HEADACHE
     Dosage: 1 DF DAILY, AS NEEDED
     Dates: start: 201312

REACTIONS (5)
  - Atrial fibrillation [Unknown]
  - Off label use [Not Recovered/Not Resolved]
  - Confusional state [Unknown]
  - Ischaemic stroke [Unknown]
  - Dizziness [Unknown]

NARRATIVE: CASE EVENT DATE: 201312
